FAERS Safety Report 6109385-1 (Version None)
Quarter: 2009Q1

REPORT INFORMATION
  Report Type: 
  Country: None (occurrence: None)
  Receive Date: 20090310
  Receipt Date: 20090305
  Transmission Date: 20090719
  Serious: Yes (Hospitalization)
  Sender: FDA-Public Use
  Company Number: A0771543A

PATIENT
  Age: 63 Year
  Sex: Female

DRUGS (2)
  1. VALTREX [Suspect]
     Dosage: 1G THREE TIMES PER DAY
     Route: 048
     Dates: start: 20090216, end: 20090217
  2. METHYLPREDNISOLONE [Suspect]

REACTIONS (4)
  - LARGE INTESTINE PERFORATION [None]
  - NAUSEA [None]
  - PRURITUS [None]
  - VOMITING [None]
